FAERS Safety Report 21215747 (Version 3)
Quarter: 2023Q1

REPORT INFORMATION
  Report Type: Report from Study
  Country: US (occurrence: US)
  Receive Date: 20220816
  Receipt Date: 20230103
  Transmission Date: 20230417
  Serious: Yes (Hospitalization, Other)
  Sender: FDA-Public Use
  Company Number: US-BAUSCH-BL-2022-019794

PATIENT
  Age: 75 Year
  Sex: Male

DRUGS (11)
  1. SILIQ [Suspect]
     Active Substance: BRODALUMAB
     Indication: Psoriasis
     Dosage: QOD
     Route: 058
     Dates: start: 202208
  2. SILIQ [Suspect]
     Active Substance: BRODALUMAB
     Dosage: ONCE EVERY OTHER WEEK
     Route: 058
     Dates: start: 20220810, end: 202208
  3. SILIQ [Suspect]
     Active Substance: BRODALUMAB
     Dosage: EVERY 2 WEEKS
     Route: 058
     Dates: start: 20221006
  4. VICTOZA [Concomitant]
     Active Substance: LIRAGLUTIDE
     Indication: Product used for unknown indication
  5. LIPITOR [Concomitant]
     Active Substance: ATORVASTATIN CALCIUM
     Indication: Product used for unknown indication
  6. METFORMIN [Concomitant]
     Active Substance: METFORMIN HYDROCHLORIDE
     Indication: Product used for unknown indication
  7. LEVOTHYROXINE [Concomitant]
     Active Substance: LEVOTHYROXINE
     Indication: Product used for unknown indication
  8. LISINOPRIL [Concomitant]
     Active Substance: LISINOPRIL
     Indication: Product used for unknown indication
  9. TRESIBA [Concomitant]
     Active Substance: INSULIN DEGLUDEC
     Indication: Product used for unknown indication
  10. ROSUVASTATIN [Concomitant]
     Active Substance: ROSUVASTATIN
     Indication: Product used for unknown indication
  11. OZEMPIC [Concomitant]
     Active Substance: SEMAGLUTIDE
     Indication: Product used for unknown indication

REACTIONS (9)
  - Skin fissures [Unknown]
  - Skin haemorrhage [Unknown]
  - Cellulitis [Unknown]
  - Staphylococcal infection [Unknown]
  - Pain in extremity [Unknown]
  - Herpes zoster [Unknown]
  - COVID-19 [Recovered/Resolved]
  - Product use issue [Unknown]
  - Intentional product use issue [Unknown]

NARRATIVE: CASE EVENT DATE: 20220101
